FAERS Safety Report 7641517-6 (Version None)
Quarter: 2011Q3

REPORT INFORMATION
  Report Type: 
  Country: None (occurrence: None)
  Receive Date: 20110727
  Receipt Date: 20110727
  Transmission Date: 20111222
  Serious: Yes (Hospitalization)
  Sender: FDA-Public Use
  Company Number: None

PATIENT
  Sex: Female
  Weight: 82 kg

DRUGS (3)
  1. PEGFILGRASTIM (NEULASTA) [Suspect]
     Dosage: 6MG
  2. TAXOL [Suspect]
     Dosage: 340MG
  3. IFOSFAMIDE [Suspect]
     Dosage: 11.64G

REACTIONS (1)
  - PNEUMONIA [None]
